FAERS Safety Report 14592466 (Version 1)
Quarter: 2018Q1

REPORT INFORMATION
  Report Type: Spontaneous
  Country: US (occurrence: US)
  Receive Date: 20180302
  Receipt Date: 20180302
  Transmission Date: 20180509
  Serious: Yes (Hospitalization)
  Sender: FDA-Public Use
  Company Number: US-FRESENIUS MEDICAL CARE RENAL THERAPIES GROUP-FMC-1802-000373

PATIENT
  Sex: Female
  Weight: 58.7 kg

DRUGS (12)
  1. CITALOPRAM [Concomitant]
     Active Substance: CITALOPRAM HYDROBROMIDE
  2. KEPPRA [Concomitant]
     Active Substance: LEVETIRACETAM
  3. METRONIDAZOLE. [Concomitant]
     Active Substance: METRONIDAZOLE
  4. TRILEPTAL [Concomitant]
     Active Substance: OXCARBAZEPINE
  5. CALCIUM CARBONATE. [Concomitant]
     Active Substance: CALCIUM CARBONATE
  6. AMLODIPINE [Concomitant]
     Active Substance: AMLODIPINE BESYLATE
  7. LOVASTATIN. [Concomitant]
     Active Substance: LOVASTATIN
  8. POTASSIUM CHLORIDE. [Concomitant]
     Active Substance: POTASSIUM CHLORIDE
  9. DELFLEX WITH DEXTROSE 1.5% LOW MAGNESIUM LOW CALCIUM [Suspect]
     Active Substance: CALCIUM CHLORIDE\DEXTROSE\MAGNESIUM CHLORIDE\SODIUM CHLORIDE\SODIUM LACTATE
     Indication: END STAGE RENAL DISEASE
     Dosage: 3 EXCHANGES OF 1.2L/EACH
     Route: 033
     Dates: start: 2016
  10. SODIUM BICARBONATE. [Concomitant]
     Active Substance: SODIUM BICARBONATE
  11. METOPROLOL. [Concomitant]
     Active Substance: METOPROLOL
  12. SEVELAMER [Concomitant]
     Active Substance: SEVELAMER

REACTIONS (3)
  - Sepsis [Unknown]
  - Peritonitis bacterial [Unknown]
  - Large intestine perforation [Unknown]
